FAERS Safety Report 15456505 (Version 1)
Quarter: 2018Q3

REPORT INFORMATION
  Report Type: Spontaneous
  Country: US (occurrence: US)
  Receive Date: 20180928
  Receipt Date: 20180928
  Transmission Date: 20181010
  Serious: Yes (Hospitalization)
  Sender: FDA-Public Use
  Company Number: None

PATIENT
  Sex: Male

DRUGS (4)
  1. TRAMADOL, LORAZEPAM, HYDROCHLOROT [Concomitant]
  2. LIPITOR, TRICOR, MIRALAX, VENTOLIN [Concomitant]
  3. LISINOPRIL, ALLEGRA D [Concomitant]
  4. ZYTIGA [Suspect]
     Active Substance: ABIRATERONE ACETATE
     Indication: PROSTATE CANCER
     Route: 048
     Dates: start: 20170811

REACTIONS (2)
  - Hypertension [None]
  - Palpitations [None]
